FAERS Safety Report 9376577 (Version 2)
Quarter: 2013Q4

REPORT INFORMATION
  Report Type: Spontaneous
  Country: US (occurrence: US)
  Receive Date: 20130701
  Receipt Date: 20131108
  Transmission Date: 20140711
  Serious: No
  Sender: FDA-Public Use
  Company Number: US-PFIZER INC-2013194451

PATIENT
  Age: 62 Year
  Sex: Female

DRUGS (2)
  1. LYRICA [Suspect]
     Indication: FIBROMYALGIA
     Dosage: 150 MG, 3X/DAY
     Dates: start: 2012
  2. LYRICA [Suspect]
     Dosage: 225 MG 3X3

REACTIONS (3)
  - Bronchitis [Unknown]
  - Upper respiratory tract congestion [Unknown]
  - Overdose [Unknown]
